FAERS Safety Report 8068976-1 (Version None)
Quarter: 2012Q1

REPORT INFORMATION
  Report Type: 
  Country: None (occurrence: None)
  Receive Date: 20120118
  Receipt Date: 20120107
  Transmission Date: 20120608
  Serious: Yes (Hospitalization)
  Sender: FDA-Public Use
  Company Number: 2012AP000049

PATIENT
  Age: 49 Year
  Sex: Female

DRUGS (1)
  1. LAMOTRIGINE [Suspect]
     Indication: BACK PAIN
     Dosage: UNKNOWN

REACTIONS (13)
  - THROMBOCYTOPENIA [None]
  - SEPSIS [None]
  - ASCITES [None]
  - BACK PAIN [None]
  - DRUG RASH WITH EOSINOPHILIA AND SYSTEMIC SYMPTOMS [None]
  - ABDOMINAL PAIN [None]
  - HEPATITIS [None]
  - HEADACHE [None]
  - PLEURAL EFFUSION [None]
  - RASH MACULO-PAPULAR [None]
  - LYMPHADENOPATHY [None]
  - HEART RATE INCREASED [None]
  - ZOONOSIS [None]
